FAERS Safety Report 5285350-1 (Version None)
Quarter: 2007Q2

REPORT INFORMATION
  Report Type: 
  Country: None (occurrence: None)
  Receive Date: 20070403
  Receipt Date: 20070322
  Transmission Date: 20071010
  Serious: Yes (Other)
  Sender: FDA-Public Use
  Company Number: US-PFIZER INC-2007024255

PATIENT
  Sex: Female
  Weight: 65.8 kg

DRUGS (2)
  1. CHANTIX [Suspect]
     Indication: EX-SMOKER
     Route: 048
  2. ALPRAZOLAM [Suspect]
     Indication: STRESS
     Route: 048

REACTIONS (2)
  - DRUG DEPENDENCE [None]
  - WEIGHT INCREASED [None]
